FAERS Safety Report 16136228 (Version 1)
Quarter: 2019Q1

REPORT INFORMATION
  Report Type: Spontaneous
  Country: SE (occurrence: SE)
  Receive Date: 20190329
  Receipt Date: 20190329
  Transmission Date: 20190418
  Serious: Yes (Death)
  Sender: FDA-Public Use
  Company Number: SE-PFIZER INC-2019136156

PATIENT
  Age: 69 Year
  Sex: Male

DRUGS (7)
  1. NITRONG [Concomitant]
     Active Substance: NITROGLYCERIN
     Dosage: UNK
  2. FURIX [Concomitant]
     Active Substance: FUROSEMIDE
     Dosage: UNK
  3. SPIRONOLACTONE. [Concomitant]
     Active Substance: SPIRONOLACTONE
     Dosage: UNK
  4. RENITEC [ENALAPRIL MALEATE] [Concomitant]
     Dosage: UNK
  5. METOPROLOL TARTRATE. [Concomitant]
     Active Substance: METOPROLOL TARTRATE
     Dosage: UNK
  6. CORDARONE [Suspect]
     Active Substance: AMIODARONE HYDROCHLORIDE
     Indication: ATRIAL FIBRILLATION
     Dosage: 200 MG, UNK
     Route: 048
     Dates: start: 19990616, end: 19990619
  7. WARAN [Concomitant]
     Active Substance: WARFARIN SODIUM
     Dosage: UNK

REACTIONS (2)
  - Transaminases increased [Fatal]
  - Blood bilirubin increased [Fatal]

NARRATIVE: CASE EVENT DATE: 19990619
